FAERS Safety Report 6013894-3 (Version None)
Quarter: 2008Q4

REPORT INFORMATION
  Report Type: 
  Country: None (occurrence: None)
  Receive Date: 20081219
  Receipt Date: 20080926
  Transmission Date: 20090506
  Serious: No
  Sender: FDA-Public Use
  Company Number: A0749449A

PATIENT
  Sex: Female

DRUGS (11)
  1. ADVAIR DISKUS 250/50 [Suspect]
     Indication: ASTHMA
     Dosage: 2SPR TWICE PER DAY
     Route: 055
     Dates: start: 20080911
  2. BENICAR [Concomitant]
  3. ZOCOR [Concomitant]
  4. SINGULAIR [Concomitant]
  5. TRICOL SOFTGEL [Concomitant]
  6. LEVOTHYROXINE SODIUM [Concomitant]
  7. ASPIRIN [Concomitant]
  8. NEXIUM [Concomitant]
  9. QUINIDINE HCL [Concomitant]
  10. ATROVENT [Concomitant]
  11. ALPHAGAN [Concomitant]

REACTIONS (2)
  - BACK PAIN [None]
  - CONSTIPATION [None]
